FAERS Safety Report 5040916-9 (Version None)
Quarter: 2006Q2

REPORT INFORMATION
  Report Type: 
  Country: None (occurrence: None)
  Receive Date: 20060601
  Receipt Date: 20060302
  Transmission Date: 20061013
  Serious: No
  Sender: FDA-Public Use
  Company Number: 2006PV009583

PATIENT
  Age: 58 Year
  Sex: Male
  Weight: 115.2136 kg

DRUGS (10)
  1. BYETTA [Suspect]
     Indication: DIABETES MELLITUS NON-INSULIN-DEPENDENT
     Dosage: SEE IMAGE
     Route: 058
     Dates: start: 20050801, end: 20050901
  2. BYETTA [Suspect]
     Indication: DIABETES MELLITUS NON-INSULIN-DEPENDENT
     Dosage: SEE IMAGE
     Route: 058
     Dates: start: 20050901
  3. ACTOS [Concomitant]
  4. METFORMIN [Concomitant]
  5. AMARYL [Concomitant]
  6. LISINOPRIL [Concomitant]
  7. ZOCOR ^MERCK FROSST^ [Concomitant]
  8. ADVAIR INHALER [Concomitant]
  9. GLAUCOMA EYE DROPS [Concomitant]
  10. HYDROCHLOROTHIAZIDE [Concomitant]

REACTIONS (6)
  - ANOREXIA [None]
  - BACK PAIN [None]
  - CONDITION AGGRAVATED [None]
  - DIFFICULTY IN WALKING [None]
  - PAIN IN EXTREMITY [None]
  - WEIGHT DECREASED [None]
